FAERS Safety Report 20137442 (Version 1)
Quarter: 2021Q4

REPORT INFORMATION
  Report Type: Spontaneous
  Country: CA (occurrence: CA)
  Receive Date: 20211201
  Receipt Date: 20211201
  Transmission Date: 20220304
  Serious: Yes (Hospitalization)
  Sender: FDA-Public Use
  Company Number: CA-TEVA-2021-CA-1983021

PATIENT
  Age: 60 Year
  Sex: Male
  Weight: 175 kg

DRUGS (19)
  1. CLOPIDOGREL [Suspect]
     Active Substance: CLOPIDOGREL BISULFATE
     Indication: Percutaneous coronary intervention
     Dosage: 75 MILLIGRAM DAILY;
     Route: 048
  2. CLOPIDOGREL [Suspect]
     Active Substance: CLOPIDOGREL BISULFATE
     Indication: Coronary artery disease
  3. ELIQUIS [Suspect]
     Active Substance: APIXABAN
     Indication: Cerebrovascular accident
     Dosage: 10 MILLIGRAM DAILY;
     Route: 048
  4. ELIQUIS [Suspect]
     Active Substance: APIXABAN
     Indication: Prophylaxis
  5. ELIQUIS [Suspect]
     Active Substance: APIXABAN
     Indication: Atrial fibrillation
  6. LANTUS [Suspect]
     Active Substance: INSULIN GLARGINE
     Dosage: 52.0 UNITS
     Route: 058
  7. NOVORAPID [Suspect]
     Active Substance: INSULIN ASPART
     Route: 058
  8. ASPIRIN [Concomitant]
     Active Substance: ASPIRIN
     Route: 065
  9. ATORVASTATIN [Concomitant]
     Active Substance: ATORVASTATIN
  10. CANDESARTAN [Concomitant]
     Active Substance: CANDESARTAN
  11. LASIX [Concomitant]
     Active Substance: FUROSEMIDE
  12. NITROGLYCERIN [Concomitant]
     Active Substance: NITROGLYCERIN
  13. PANTOPRAZOLE [Concomitant]
     Active Substance: PANTOPRAZOLE
  14. PREDNISONE [Concomitant]
     Active Substance: PREDNISONE
  15. RANITIDINE [Concomitant]
     Active Substance: RANITIDINE
  16. SANDOZ BRINZOLAMIDE [Concomitant]
  17. SOTALOL [Concomitant]
     Active Substance: SOTALOL
  18. TRAVOPROST [Concomitant]
     Active Substance: TRAVOPROST
  19. VITAMIN D/CALCIUM DIETARY SUPPLEMENT [Concomitant]

REACTIONS (4)
  - N-terminal prohormone brain natriuretic peptide increased [Recovered/Resolved]
  - Troponin increased [Recovered/Resolved]
  - Cardiac failure acute [Recovered/Resolved]
  - Coronary artery disease [Recovered/Resolved]
